FAERS Safety Report 22290857 (Version 1)
Quarter: 2023Q2

REPORT INFORMATION
  Report Type: Spontaneous
  Country: US (occurrence: US)
  Receive Date: 20230506
  Receipt Date: 20230506
  Transmission Date: 20230722
  Serious: Yes (Other)
  Sender: FDA-Public Use
  Company Number: US-AUROBINDO-AUR-APL-2023-033767

PATIENT
  Sex: Male
  Weight: 2.26 kg

DRUGS (2)
  1. LAMOTRIGINE [Suspect]
     Active Substance: LAMOTRIGINE
     Indication: Epilepsy
     Dosage: 400 MILLIGRAM
     Route: 064
     Dates: start: 20211221, end: 20220913
  2. LEVETIRACETAM [Suspect]
     Active Substance: LEVETIRACETAM
     Indication: Epilepsy
     Dosage: 4000 MILLIGRAM
     Route: 064
     Dates: start: 20211221, end: 20220913

REACTIONS (5)
  - Ventricular septal defect [Unknown]
  - Atrial septal defect [Unknown]
  - Surgery [Unknown]
  - Neonatal respiratory depression [Unknown]
  - Foetal exposure during pregnancy [Unknown]

NARRATIVE: CASE EVENT DATE: 20220913
